FAERS Safety Report 5027717-2 (Version None)
Quarter: 2006Q2

REPORT INFORMATION
  Report Type: 
  Country: None (occurrence: None)
  Receive Date: 20060614
  Receipt Date: 20060614
  Transmission Date: 20061013
  Serious: Yes (Death, Life-Threatening, Hospitalization)
  Sender: FDA-Public Use
  Company Number: None

PATIENT
  Age: 57 Year
  Sex: Female

DRUGS (7)
  1. ERBITUX [Suspect]
     Dosage: 950MG  ONE TIME IV
     Route: 042
     Dates: start: 20060427, end: 20060427
  2. ANZEMET [Concomitant]
  3. DECADRON [Concomitant]
  4. ATROPINE [Concomitant]
  5. COMPAZINE [Concomitant]
  6. TYLENOL (CAPLET) [Concomitant]
  7. BENADRYL [Concomitant]

REACTIONS (6)
  - CARDIO-RESPIRATORY ARREST [None]
  - DYSPNOEA [None]
  - MICTURITION URGENCY [None]
  - MYOCARDIAL INFARCTION [None]
  - OXYGEN SATURATION DECREASED [None]
  - PRURITUS [None]
